FAERS Safety Report 19274947 (Version 1)
Quarter: 2021Q2

REPORT INFORMATION
  Report Type: Report from Study
  Country: CO (occurrence: CO)
  Receive Date: 20210519
  Receipt Date: 20210519
  Transmission Date: 20210717
  Serious: Yes (Other)
  Sender: FDA-Public Use
  Company Number: NVSC2021CO110177

PATIENT
  Sex: Female
  Weight: 52 kg

DRUGS (3)
  1. LOSARTAN. [Suspect]
     Active Substance: LOSARTAN
     Indication: HYPERTENSION
     Dosage: 50 MG, Q12H
     Route: 048
  2. LINAGLIPTIN [Concomitant]
     Active Substance: LINAGLIPTIN
     Indication: DIABETES MELLITUS
     Dosage: 200 MG, QD (8 YEARS AGO)
     Route: 048
  3. METFORMIN [Suspect]
     Active Substance: METFORMIN HYDROCHLORIDE
     Indication: DIABETES MELLITUS
     Dosage: 850 MG, Q12H
     Route: 048

REACTIONS (6)
  - Breast cancer metastatic [Unknown]
  - Metastases to stomach [Recovered/Resolved]
  - Metastases to lung [Recovered/Resolved]
  - Product prescribing error [Unknown]
  - Pulmonary mass [Unknown]
  - Breast cancer [Unknown]
